FAERS Safety Report 5856399-2 (Version None)
Quarter: 2008Q3

REPORT INFORMATION
  Report Type: 
  Country: None (occurrence: None)
  Receive Date: 20080825
  Receipt Date: 20080822
  Transmission Date: 20090109
  Serious: Yes (Other)
  Sender: FDA-Public Use
  Company Number: A0743867A

PATIENT
  Age: 53 Year
  Sex: Female

DRUGS (2)
  1. ALLI [Suspect]
  2. SYNTHROID [Concomitant]

REACTIONS (4)
  - CONTUSION [None]
  - FALL [None]
  - SKIN LACERATION [None]
  - SYNCOPE [None]
